FAERS Safety Report 24949557 (Version 1)
Quarter: 2025Q1

REPORT INFORMATION
  Report Type: Spontaneous
  Country: US (occurrence: US)
  Receive Date: 20250210
  Receipt Date: 20250210
  Transmission Date: 20250409
  Serious: No
  Sender: BAYER HEALTHCARE LLC
  Company Number: US-BAYER-2025A019007

PATIENT
  Age: 41 Year
  Sex: Female

DRUGS (5)
  1. LORATADINE [Suspect]
     Active Substance: LORATADINE
     Indication: Hypersensitivity
     Dosage: UNK, BID
     Route: 048
     Dates: start: 20250124, end: 20250207
  2. LORATADINE [Suspect]
     Active Substance: LORATADINE
     Indication: Nasopharyngitis
  3. LORATADINE [Suspect]
     Active Substance: LORATADINE
     Indication: Rhinorrhoea
  4. LORATADINE [Suspect]
     Active Substance: LORATADINE
     Indication: Lacrimation increased
  5. LORATADINE [Suspect]
     Active Substance: LORATADINE
     Indication: Sneezing

REACTIONS (1)
  - Drug ineffective [Not Recovered/Not Resolved]
